FAERS Safety Report 20350685 (Version 20)
Quarter: 2022Q3

REPORT INFORMATION
  Report Type: Report from Study
  Country: US (occurrence: US)
  Receive Date: 20220119
  Receipt Date: 20220810
  Transmission Date: 20221027
  Serious: Yes (Other)
  Sender: FDA-Public Use
  Company Number: US-NOVARTISTESTPH-NVSC2022US009376

PATIENT
  Age: 56 Year
  Sex: Female
  Weight: 49.89 kg

DRUGS (16)
  1. TREPROSTINIL [Suspect]
     Active Substance: TREPROSTINIL
     Indication: Pulmonary arterial hypertension
     Dosage: UNK
     Route: 058
  2. TREPROSTINIL [Suspect]
     Active Substance: TREPROSTINIL
     Indication: Pulmonary arterial hypertension
     Dosage: 24 NG/KG/MIN, CONT
     Route: 042
  3. TREPROSTINIL [Suspect]
     Active Substance: TREPROSTINIL
     Dosage: 24 NG/KG/MIN, CONT
     Route: 058
     Dates: start: 20220119
  4. TREPROSTINIL [Suspect]
     Active Substance: TREPROSTINIL
     Dosage: 47.8 NG/KG/MIN, CONT
     Route: 058
  5. TREPROSTINIL [Suspect]
     Active Substance: TREPROSTINIL
     Dosage: 34.2 NG/KG/MIN, CONT
     Route: 058
  6. TREPROSTINIL [Suspect]
     Active Substance: TREPROSTINIL
     Dosage: 61.4 NG/KG/MIN, CONT
     Route: 058
  7. TREPROSTINIL [Suspect]
     Active Substance: TREPROSTINIL
     Dosage: 75 NG/KG/MIN, CONT
     Route: 058
  8. REMODULIN [Suspect]
     Active Substance: TREPROSTINIL
     Indication: Product used for unknown indication
     Dosage: UNK
     Route: 058
  9. ORENITRAM [Suspect]
     Active Substance: TREPROSTINIL
     Indication: Pulmonary arterial hypertension
     Dosage: 7.5 MG, TID
     Route: 048
     Dates: start: 202207, end: 202207
  10. ORENITRAM [Suspect]
     Active Substance: TREPROSTINIL
     Dosage: 5 MG, TID
     Route: 065
     Dates: start: 202207
  11. ORENITRAM [Suspect]
     Active Substance: TREPROSTINIL
     Dosage: UNK
     Route: 065
  12. ORENITRAM [Suspect]
     Active Substance: TREPROSTINIL
     Dosage: UNK
     Route: 048
  13. AMLODIPINE [Concomitant]
     Active Substance: AMLODIPINE BESYLATE
     Indication: Product used for unknown indication
     Dosage: UNK
     Route: 065
  14. VELETRI [Concomitant]
     Active Substance: EPOPROSTENOL
     Indication: Product used for unknown indication
     Dosage: UNK
     Route: 065
  15. TADALAFIL [Concomitant]
     Active Substance: TADALAFIL
     Indication: Product used for unknown indication
     Dosage: UNK, BID
     Route: 065
  16. AMBRISENTAN [Concomitant]
     Active Substance: AMBRISENTAN
     Indication: Product used for unknown indication
     Dosage: UNK
     Route: 065

REACTIONS (25)
  - Mental impairment [Unknown]
  - Anxiety [Unknown]
  - Dyspnoea [Unknown]
  - Haemoptysis [Unknown]
  - Nervousness [Unknown]
  - Gait inability [Unknown]
  - Musculoskeletal chest pain [Unknown]
  - Gastrointestinal disorder [Unknown]
  - Pain [Unknown]
  - Dizziness [Unknown]
  - Diarrhoea [Unknown]
  - Peripheral swelling [Unknown]
  - Oedema peripheral [Unknown]
  - Swelling face [Unknown]
  - Asthenia [Unknown]
  - Nausea [Unknown]
  - Vomiting [Recovered/Resolved]
  - Headache [Unknown]
  - Myalgia [Unknown]
  - Dizziness postural [Unknown]
  - Oedema [Unknown]
  - Arthralgia [Unknown]
  - Injection site pain [Unknown]
  - Injection site swelling [Unknown]
  - Injection site erythema [Unknown]

NARRATIVE: CASE EVENT DATE: 20220701
